FAERS Safety Report 14914522 (Version 1)
Quarter: 2018Q2

REPORT INFORMATION
  Report Type: Spontaneous
  Country: US (occurrence: US)
  Receive Date: 20180518
  Receipt Date: 20180518
  Transmission Date: 20180711
  Serious: No
  Sender: FDA-Public Use
  Company Number: US-JAZZ-JPI-P-016723

PATIENT
  Age: 33 Year
  Sex: Female
  Weight: 77.27 kg

DRUGS (2)
  1. XYREM [Suspect]
     Active Substance: SODIUM OXYBATE
     Indication: NARCOLEPSY
     Dosage: 4 G, BID
     Route: 048
  2. XYREM [Suspect]
     Active Substance: SODIUM OXYBATE
     Indication: CATAPLEXY
     Dosage: UNK UNKNOWN, SINGLE
     Route: 048
     Dates: start: 20050407

REACTIONS (1)
  - Restless legs syndrome [Unknown]

NARRATIVE: CASE EVENT DATE: 201103
